FAERS Safety Report 23709921 (Version 1)
Quarter: 2024Q2

REPORT INFORMATION
  Report Type: Spontaneous
  Country: DE (occurrence: DE)
  Receive Date: 20240405
  Receipt Date: 20240405
  Transmission Date: 20240716
  Serious: Yes (Other)
  Sender: FDA-Public Use
  Company Number: DE-SUN PHARMACEUTICAL INDUSTRIES LTD-2024RR-440527

PATIENT
  Age: 78 Year
  Sex: Male
  Weight: 78 kg

DRUGS (1)
  1. TAMSULOSIN [Suspect]
     Active Substance: TAMSULOSIN
     Indication: Micturition urgency
     Dosage: 1 DOSAGE FORM, SINGLE
     Route: 048
     Dates: start: 20231216, end: 20231216

REACTIONS (4)
  - Syncope [Recovered/Resolved]
  - Circulatory collapse [Recovered/Resolved]
  - Fall [Unknown]
  - Wound [Unknown]

NARRATIVE: CASE EVENT DATE: 20231216
